FAERS Safety Report 19021504 (Version 1)
Quarter: 2021Q1

REPORT INFORMATION
  Report Type: Other
  Country: IN (occurrence: IN)
  Receive Date: 20210317
  Receipt Date: 20210317
  Transmission Date: 20210420
  Serious: Yes (Other)
  Sender: FDA-Public Use
  Company Number: IN-ROCHE-2790907

PATIENT

DRUGS (1)
  1. TENECTEPLASE [Suspect]
     Active Substance: TENECTEPLASE
     Indication: PROSTHETIC CARDIAC VALVE THROMBOSIS
     Dosage: [0.50 MG/KG]/24 PER HOUR
     Route: 042

REACTIONS (1)
  - Transient ischaemic attack [Unknown]
